FAERS Safety Report 8616460 (Version 2)
Quarter: 2013Q2

REPORT INFORMATION
  Report Type: Spontaneous
  Country: US (occurrence: US)
  Receive Date: 20120615
  Receipt Date: 20130614
  Transmission Date: 20140414
  Serious: Yes (Hospitalization, Disabling)
  Sender: FDA-Public Use
  Company Number: US-ASTRAZENECA-2012SE36176

PATIENT
  Age: 529 Month
  Sex: Female
  Weight: 101.2 kg

DRUGS (7)
  1. NEXIUM [Suspect]
     Indication: BACK PAIN
     Dosage: AS NEEDED
     Route: 048
  2. AMITRIPTYLIN [Concomitant]
  3. DICLOFENAC [Concomitant]
  4. HYDROCHLOROTHIAZIDE [Concomitant]
  5. PRAVASTATIN [Concomitant]
  6. EQUATE COMPLETE MULTIVITAMIN [Concomitant]
  7. TRIMONTOL [Concomitant]

REACTIONS (10)
  - Bladder disorder [Unknown]
  - Hip fracture [Unknown]
  - Osteoporosis [Unknown]
  - Haemorrhage [Unknown]
  - Stress [Unknown]
  - Arthritis [Unknown]
  - Calcium deficiency [Unknown]
  - Diabetes mellitus [Unknown]
  - Sickle cell anaemia [Unknown]
  - Hallucination, visual [Unknown]
